FAERS Safety Report 7158371-1 (Version None)
Quarter: 2010Q4

REPORT INFORMATION
  Report Type: 
  Country: None (occurrence: None)
  Receive Date: 20101130
  Receipt Date: 20101109
  Transmission Date: 20110411
  Serious: Yes (Death, Life-Threatening, Hospitalization, Other)
  Sender: FDA-Public Use
  Company Number: DE-2010-1938

PATIENT
  Age: 49 Year
  Sex: Female
  Weight: 86.4 kg

DRUGS (3)
  1. NAVELBINE [Suspect]
     Indication: NON-SMALL CELL LUNG CANCER
     Dosage: 20 MG/M2 IV
     Route: 042
     Dates: start: 20100724, end: 20100824
  2. PACLITAXEL [Suspect]
     Indication: NON-SMALL CELL LUNG CANCER
     Dates: start: 20100611, end: 20100723
  3. CISPLATIN [Suspect]
     Indication: NON-SMALL CELL LUNG CANCER
     Dosage: 50 MG/M2
     Dates: start: 20100611, end: 20100824

REACTIONS (13)
  - ATRIAL FIBRILLATION [None]
  - BONE MARROW FAILURE [None]
  - CLOSTRIDIUM DIFFICILE COLITIS [None]
  - COLITIS [None]
  - GENERAL PHYSICAL HEALTH DETERIORATION [None]
  - HEPATIC FAILURE [None]
  - INTESTINAL ISCHAEMIA [None]
  - POSTOPERATIVE ILEUS [None]
  - RENAL FAILURE [None]
  - RESPIRATORY DISORDER [None]
  - SEPTIC SHOCK [None]
  - SUPRAVENTRICULAR TACHYCARDIA [None]
  - SYSTEMIC INFLAMMATORY RESPONSE SYNDROME [None]
